FAERS Safety Report 13112652 (Version 3)
Quarter: 2017Q1

REPORT INFORMATION
  Report Type: Spontaneous
  Country: US (occurrence: US)
  Receive Date: 20170113
  Receipt Date: 20170216
  Transmission Date: 20170428
  Serious: Yes (Other)
  Sender: FDA-Public Use
  Company Number: US-AUROBINDO-AUR-APL-2017-00394

PATIENT
  Sex: Female

DRUGS (1)
  1. AUROTUSSIN PEAK COLD MULTI-SYMPTOM COLD [Suspect]
     Active Substance: DEXTROMETHORPHAN HYDROBROMIDE\GUAIFENESIN\PHENYLEPHRINE HYDROCHLORIDE
     Indication: PRODUCT USED FOR UNKNOWN INDICATION
     Dosage: 10 ML, ONCE A DAY
     Route: 065

REACTIONS (6)
  - Feeling abnormal [Recovered/Resolved]
  - Hangover [Recovered/Resolved]
  - Pruritus [Recovered/Resolved]
  - Vomiting projectile [Recovered/Resolved]
  - Measles [Recovered/Resolved]
  - Dizziness [Recovered/Resolved]
